FAERS Safety Report 7127439-8 (Version None)
Quarter: 2010Q4

REPORT INFORMATION
  Report Type: 
  Country: None (occurrence: None)
  Receive Date: 20101129
  Receipt Date: 20091207
  Transmission Date: 20110411
  Serious: No
  Sender: FDA-Public Use
  Company Number: US-PFIZER INC-2009296681

PATIENT
  Age: 69 Year
  Sex: Female
  Weight: 79.4 kg

DRUGS (2)
  1. REVATIO [Suspect]
     Indication: PULMONARY HYPERTENSION
     Dosage: 10 MG, 1X/DAY
     Route: 048
     Dates: start: 20090101, end: 20090101
  2. SIMVASTATIN [Concomitant]
     Indication: BLOOD CHOLESTEROL INCREASED

REACTIONS (7)
  - ASTHENIA [None]
  - EYE PAIN [None]
  - HEADACHE [None]
  - MALAISE [None]
  - PAIN [None]
  - PHOTOPSIA [None]
  - SINUS CONGESTION [None]
